FAERS Safety Report 8327659-0 (Version None)
Quarter: 2012Q2

REPORT INFORMATION
  Report Type: 
  Country: None (occurrence: None)
  Receive Date: 20120502
  Receipt Date: 20120424
  Transmission Date: 20120825
  Serious: Yes (Other)
  Sender: FDA-Public Use
  Company Number: US-PFIZER INC-2012069032

PATIENT
  Sex: Female

DRUGS (1)
  1. ALSUMA [Suspect]
     Indication: MIGRAINE
     Dosage: 6 MG, AS NEEDED
     Route: 058
     Dates: start: 20120315

REACTIONS (3)
  - INJECTION SITE URTICARIA [None]
  - URTICARIA [None]
  - CHEST PAIN [None]
